FAERS Safety Report 6042394-X (Version None)
Quarter: 2009Q1

REPORT INFORMATION
  Report Type: 
  Country: None (occurrence: None)
  Receive Date: 20090116
  Receipt Date: 20090106
  Transmission Date: 20090719
  Serious: Yes (Other)
  Sender: FDA-Public Use
  Company Number: JP-PFIZER INC-2008159364

PATIENT

DRUGS (2)
  1. CARDENALIN [Suspect]
     Dosage: 2 MG, 1X/DAY
     Route: 048
  2. ADALAT CC [Concomitant]
     Dosage: UNK
     Route: 048

REACTIONS (1)
  - INTERSTITIAL LUNG DISEASE [None]
